FAERS Safety Report 10774668 (Version 1)
Quarter: 2015Q1

REPORT INFORMATION
  Report Type: Spontaneous
  Country: US (occurrence: None)
  Receive Date: 20150206
  Receipt Date: 20150206
  Transmission Date: 20150721
  Serious: No
  Sender: FDA-Public Use
  Company Number: HYP201306-000032

PATIENT
  Age: 19 Year
  Sex: Female
  Weight: 47.62 kg

DRUGS (7)
  1. RAVICTI [Suspect]
     Active Substance: GLYCEROL PHENYLBUTYRATE
     Indication: UREA CYCLE ENZYME DEFICIENCY
     Route: 048
     Dates: start: 20130520
  2. UNSPECIFIED BIRTH CONTROL [Concomitant]
  3. SEROQUEL [Concomitant]
     Active Substance: QUETIAPINE FUMARATE
  4. ATIVAN (LOREZEPAM) [Concomitant]
  5. BENZTROPINE MESYLATE. [Concomitant]
     Active Substance: BENZTROPINE MESYLATE
  6. ARGININE [Concomitant]
     Active Substance: ARGININE
  7. CLONOPIN [Concomitant]
     Active Substance: CLONAZEPAM

REACTIONS (5)
  - Pollakiuria [None]
  - Urine odour abnormal [None]
  - Increased appetite [None]
  - Aggression [None]
  - Skin odour abnormal [None]

NARRATIVE: CASE EVENT DATE: 20130520
